FAERS Safety Report 16930448 (Version 1)
Quarter: 2019Q4

REPORT INFORMATION
  Report Type: Spontaneous
  Country: US (occurrence: US)
  Receive Date: 20191017
  Receipt Date: 20191017
  Transmission Date: 20200122
  Serious: No
  Sender: FDA-Public Use
  Company Number: US-PFIZER INC-2018278161

PATIENT
  Age: 42 Year
  Sex: Female

DRUGS (5)
  1. IBRANCE [Suspect]
     Active Substance: PALBOCICLIB
     Dosage: 100 MG, DAILY (QUANTITY OF 30)
     Route: 048
  2. IBRANCE [Suspect]
     Active Substance: PALBOCICLIB
     Dosage: 100 MG, DAILY
     Route: 048
     Dates: start: 20170214
  3. LETROZOLE. [Concomitant]
     Active Substance: LETROZOLE
     Dosage: UNK, EVERY 3 MONTHS
  4. IBRANCE [Suspect]
     Active Substance: PALBOCICLIB
     Dosage: 125 MG, UNK
  5. GOSERELIN [Concomitant]
     Active Substance: GOSERELIN
     Dosage: UNK, EVERY 3 MONTHS

REACTIONS (2)
  - Adnexa uteri cyst [Unknown]
  - Abdominal hernia [Unknown]
